FAERS Safety Report 6335950-2 (Version None)
Quarter: 2009Q3

REPORT INFORMATION
  Report Type: 
  Country: None (occurrence: None)
  Receive Date: 20090901
  Receipt Date: 20080423
  Transmission Date: 20100115
  Serious: Yes (Hospitalization, Other)
  Sender: FDA-Public Use
  Company Number: US-ASTRAZENECA-2006UW09195

PATIENT
  Age: 12316 Day
  Sex: Male
  Weight: 108.9 kg

DRUGS (12)
  1. SEROQUEL [Suspect]
     Indication: BIPOLAR DISORDER
     Dosage: APPROX. 200-400 MG
     Route: 048
     Dates: start: 19980101, end: 20060101
  2. SEROQUEL [Suspect]
     Dosage: 75-400 MG
     Route: 048
     Dates: start: 20020512, end: 20060221
  3. EFFEXOR XR [Concomitant]
     Dosage: 225 MG QAM
     Dates: start: 20020101
  4. KLONOPIN [Concomitant]
     Indication: ANXIETY
     Dosage: 1 MG TID AS NEEDED
     Dates: start: 20020512
  5. LAMICTAL [Concomitant]
     Indication: BIPOLAR DISORDER
     Dosage: 50-200 MG
     Dates: start: 20050426
  6. REMERON [Concomitant]
     Indication: BIPOLAR DISORDER
     Dosage: 15-30 MG
     Dates: start: 20050426
  7. GEODON [Concomitant]
     Indication: BIPOLAR DISORDER
     Dates: start: 20050426
  8. NEURONTIN [Concomitant]
     Dates: start: 20050426
  9. ATIVAN [Concomitant]
     Indication: BIPOLAR DISORDER
     Dosage: 4-6 MG
     Dates: start: 20050426
  10. TRAZODONE [Concomitant]
     Dates: start: 20051230
  11. PROTONIX [Concomitant]
     Dates: start: 20051230
  12. PAXIL [Concomitant]
     Dates: start: 20050101

REACTIONS (3)
  - PANCREATIC PSEUDOCYST [None]
  - PANCREATITIS [None]
  - PANCREATITIS CHRONIC [None]
